FAERS Safety Report 18583382 (Version 5)
Quarter: 2021Q1

REPORT INFORMATION
  Report Type: Report from Study
  Country: None (occurrence: US)
  Receive Date: 20201206
  Receipt Date: 20210302
  Transmission Date: 20210419
  Serious: Yes (Other)
  Sender: FDA-Public Use
  Company Number: US-ABBVIE-20K-163-3676169-00

PATIENT
  Sex: Female

DRUGS (1)
  1. RINVOQ [Suspect]
     Active Substance: UPADACITINIB
     Indication: RHEUMATOID ARTHRITIS
     Route: 048
     Dates: start: 201911

REACTIONS (6)
  - Peripheral swelling [Unknown]
  - Joint swelling [Unknown]
  - Surgery [Unknown]
  - Hypothyroidism [Unknown]
  - Pain in extremity [Not Recovered/Not Resolved]
  - Procedural pain [Unknown]
